FAERS Safety Report 9813617 (Version 1)
Quarter: 2014Q1

REPORT INFORMATION
  Report Type: Spontaneous
  Country: US (occurrence: None)
  Receive Date: 20140109
  Receipt Date: 20140109
  Transmission Date: 20141002
  Serious: Yes (Death)
  Sender: FDA-Public Use
  Company Number: SYM-2013-14563

PATIENT
  Sex: Male

DRUGS (7)
  1. XENAZINE (25 MILLIGRAM, TABLET) (TETRABENAZINE, TETRABENAZINE) [Suspect]
     Indication: HUNTINGTON^S DISEASE
     Dosage: 25 MG, 3 IN 1 D, ORAL
     Route: 048
  2. CYMBALTA [Concomitant]
  3. CLONAZEPAM ((CLONAZEPAM) (0.5 MILLIGRAM) (CLONAZEPAM) [Concomitant]
  4. CO Q10 (UBIDECARENONE) (UBIDECARENONE) [Concomitant]
  5. VITAMIN E (TOCOPHEROL) (TOCOPHEROL) [Concomitant]
  6. TYLENOL (PARACETAMOL) (PARCETAMOL) [Concomitant]
  7. VITAMIN C (ASCORBIC ACID) (ASCORBIC ACID) [Concomitant]

REACTIONS (1)
  - Death [None]
